FAERS Safety Report 16913768 (Version 1)
Quarter: 2019Q4

REPORT INFORMATION
  Report Type: Spontaneous
  Country: US (occurrence: US)
  Receive Date: 20191014
  Receipt Date: 20191014
  Transmission Date: 20200122
  Serious: Yes (Hospitalization)
  Sender: FDA-Public Use
  Company Number: US-JNJFOC-20191014749

PATIENT
  Age: 41 Year
  Sex: Female
  Weight: 82.7 kg

DRUGS (2)
  1. GUSELKUMAB SOLUTION FOR INJECTION [Suspect]
     Active Substance: GUSELKUMAB
     Indication: PSORIASIS
     Route: 058
     Dates: start: 20190211
  2. ORTHO TRI CYCLEN [Concomitant]
     Active Substance: ETHINYL ESTRADIOL\NORGESTIMATE
     Indication: PROPHYLAXIS
     Route: 065
     Dates: start: 201808

REACTIONS (2)
  - Nephrolithiasis [Unknown]
  - Appendicolith [Unknown]

NARRATIVE: CASE EVENT DATE: 20190910
